FAERS Safety Report 4806824-0 (Version None)
Quarter: 2005Q4

REPORT INFORMATION
  Report Type: 
  Country: None (occurrence: None)
  Receive Date: 20051019
  Receipt Date: 20051006
  Transmission Date: 20060501
  Serious: Yes (Hospitalization)
  Sender: FDA-Public Use
  Company Number: 2005138904

PATIENT
  Age: 74 Year
  Sex: Male

DRUGS (14)
  1. VFEND [Suspect]
     Indication: BRONCHOPULMONARY ASPERGILLOSIS
     Dosage: 400 MG, ORAL
     Route: 048
     Dates: start: 20051004
  2. SPELEAR (FUDOSTEINE) [Concomitant]
  3. UNIPHYL [Concomitant]
  4. FOIPAN (CAMOSTAT MESILATE) [Concomitant]
  5. FAMOTIDINE [Concomitant]
  6. ALPRAZOLAM [Concomitant]
  7. DOGMATYL (SULPIRIDE) [Concomitant]
  8. LENDORM [Concomitant]
  9. HOKUNALIN (TULOBUTEROL HYDROCHLORIDE) [Concomitant]
  10. ASPIRIN [Concomitant]
  11. CASODEX [Concomitant]
  12. EVIPROSTAT (CHIMAPHILA UMBELLATA, EQUISETUM ARVENSE, MANGANESE CHLORID [Concomitant]
  13. MEXITIL [Concomitant]
  14. SPIRIVA [Concomitant]

REACTIONS (2)
  - DEPRESSED LEVEL OF CONSCIOUSNESS [None]
  - METABOLIC ACIDOSIS [None]
